FAERS Safety Report 7152725 (Version 4)
Quarter: 2013Q2

REPORT INFORMATION
  Report Type: Spontaneous
  Country: BR (occurrence: BR)
  Receive Date: 20091019
  Receipt Date: 20130524
  Transmission Date: 20140414
  Serious: Yes (Hospitalization, Other)
  Sender: FDA-Public Use
  Company Number: PHHY2009BR43832

PATIENT
  Sex: Male
  Weight: 67 kg

DRUGS (3)
  1. SANDOSTATIN LAR [Suspect]
     Indication: PITUITARY TUMOUR
     Dosage: 20 MG, MONTHLY
     Route: 030
     Dates: start: 200808
  2. SANDOSTATIN LAR [Suspect]
     Dosage: 30 MG, MONTHLY
     Route: 030
     Dates: end: 20091007
  3. SANDOSTATIN LAR [Suspect]
     Dosage: 20 MG, MONTHLY
     Route: 030

REACTIONS (3)
  - Urine sodium increased [Recovered/Resolved]
  - Urine potassium increased [Recovered/Resolved]
  - Neoplasm recurrence [Not Recovered/Not Resolved]
